FAERS Safety Report 12398520 (Version 2)
Quarter: 2016Q2

REPORT INFORMATION
  Report Type: Spontaneous
  Country: CN (occurrence: CN)
  Receive Date: 20160524
  Receipt Date: 20160617
  Transmission Date: 20160815
  Serious: Yes (Death, Other)
  Sender: FDA-Public Use
  Company Number: CN-ASTELLAS-2016US019952

PATIENT
  Age: 36 Year
  Sex: Male
  Weight: 65 kg

DRUGS (2)
  1. PROGRAF [Suspect]
     Active Substance: TACROLIMUS\TACROLIMUS ANHYDROUS
     Indication: PROPHYLAXIS AGAINST TRANSPLANT REJECTION
     Dosage: 7 MG (DAILY DOSE), TWICE DAILY
     Route: 048
     Dates: start: 20160406, end: 20160519
  2. CELLCEPT [Concomitant]
     Active Substance: MYCOPHENOLATE MOFETIL\MYCOPHENOLATE MOFETIL HYDROCHLORIDE
     Indication: PROPHYLAXIS AGAINST TRANSPLANT REJECTION
     Dosage: 1000 MG (DAILY DOSE), TWICE DAILY
     Route: 048
     Dates: start: 20160406, end: 20160519

REACTIONS (6)
  - Headache [Unknown]
  - Hyponatraemia [Unknown]
  - Cardiac failure [Fatal]
  - Effusion [Unknown]
  - Hypochloraemia [Unknown]
  - Feeling hot [Unknown]

NARRATIVE: CASE EVENT DATE: 20160518
